FAERS Safety Report 5385034-5 (Version None)
Quarter: 2007Q3

REPORT INFORMATION
  Report Type: 
  Country: None (occurrence: None)
  Receive Date: 20070712
  Receipt Date: 20070703
  Transmission Date: 20080115
  Serious: Yes (Hospitalization, Other)
  Sender: FDA-Public Use
  Company Number: PHBS2007AU11254

PATIENT

DRUGS (9)
  1. HYDRALAZINE HCL [Suspect]
     Route: 064
  2. METOPROLOL SUCCINATE [Suspect]
     Route: 064
  3. ESMOLOL HCL [Suspect]
     Route: 064
  4. LABETALOL HCL [Suspect]
     Route: 064
  5. MAGNESIUM SULFATE [Suspect]
     Route: 064
  6. PROTAMINE SULFATE [Suspect]
     Route: 064
  7. ANESTHETICS, GENERAL [Suspect]
     Route: 064
  8. REMIFEMIN [Suspect]
     Route: 064
  9. PROPOFOL [Suspect]
     Route: 064

REACTIONS (7)
  - APGAR SCORE LOW [None]
  - BRADYCARDIA FOETAL [None]
  - DRUG EXPOSURE DURING PREGNANCY [None]
  - FOETAL DISORDER [None]
  - HYPOTONIA [None]
  - HYPOVENTILATION [None]
  - INTUBATION [None]
